FAERS Safety Report 5241265-6 (Version None)
Quarter: 2007Q1

REPORT INFORMATION
  Report Type: 
  Country: None (occurrence: None)
  Receive Date: 20070212
  Receipt Date: 20070212
  Transmission Date: 20070707
  Serious: No
  Sender: FDA-Public Use
  Company Number: None

PATIENT
  Age: 59 Year
  Sex: Female
  Weight: 83.9154 kg

DRUGS (1)
  1. PAXIL [Suspect]
     Indication: HYPERTENSION
     Dosage: ONE 20MG DAILY PO
     Route: 048
     Dates: start: 20001001, end: 20051001

REACTIONS (6)
  - CHILLS [None]
  - DYSGEUSIA [None]
  - DYSKINESIA [None]
  - ECONOMIC PROBLEM [None]
  - HEAD TITUBATION [None]
  - INFLUENZA LIKE ILLNESS [None]
